FAERS Safety Report 9303856 (Version 1)
Quarter: 2013Q2

REPORT INFORMATION
  Report Type: Spontaneous
  Country: US (occurrence: None)
  Receive Date: 20130521
  Receipt Date: 20130521
  Transmission Date: 20140414
  Serious: Yes (Hospitalization)
  Sender: FDA-Public Use
  Company Number: None

PATIENT
  Age: 61 Year
  Sex: Male
  Weight: 94.5 kg

DRUGS (1)
  1. PIPERACILLIN / TAZOBACTAM [Suspect]
     Dosage: OTHER
     Route: 042
     Dates: start: 20130313, end: 20130313

REACTIONS (1)
  - Anaphylactic reaction [None]
